FAERS Safety Report 9627028 (Version 2)
Quarter: 2014Q3

REPORT INFORMATION
  Report Type: Spontaneous
  Country: US (occurrence: None)
  Receive Date: 20131011
  Receipt Date: 20140804
  Transmission Date: 20150326
  Serious: Yes (Life-Threatening, Hospitalization, Disabling, Other)
  Sender: FDA-Public Use
  Company Number: 1713747-2013-99955

PATIENT
  Age: 64 Year
  Sex: Male

DRUGS (16)
  1. GRANUFLO [Concomitant]
     Active Substance: ACETIC ACID\SODIUM ACETATE
  2. PENICILLIN [Concomitant]
     Active Substance: PENICILLIN
  3. VITAMIN B COMPLEX [Concomitant]
     Active Substance: CYANOCOBALAMIN\DEXPANTHENOL\NIACINAMIDE\PYRIDOXINE HYDROCHLORIDE\RIBOFLAVIN 5^-PHOSPHATE SODIUM\THIAMINE HYDROCHLORIDE\VITAMIN B COMPLEX
  4. EPOGEN [Concomitant]
     Active Substance: ERYTHROPOIETIN
  5. 0.9% SODIUM CHLORIDE [Suspect]
     Active Substance: SODIUM CHLORIDE
     Indication: FLUID REPLACEMENT
     Dates: start: 20140630
  6. COMBISET [Concomitant]
  7. ASPIRIN. [Concomitant]
     Active Substance: ASPIRIN
  8. DIALYZER SALINE [Concomitant]
  9. PHOSLO [Concomitant]
     Active Substance: CALCIUM ACETATE
  10. BYSTOLIC [Concomitant]
     Active Substance: NEBIVOLOL HYDROCHLORIDE
  11. PRILOSEC [Concomitant]
     Active Substance: OMEPRAZOLE MAGNESIUM
  12. RENAGEL [Concomitant]
     Active Substance: SEVELAMER HYDROCHLORIDE
  13. NATURALYTE [Concomitant]
     Active Substance: ACETIC ACID\SODIUM ACETATE
  14. MIRALAX [Concomitant]
     Active Substance: POLYETHYLENE GLYCOL 3350
  15. FRESENIUS 2000K MACHINE [Concomitant]
  16. CREATOR [Concomitant]

REACTIONS (4)
  - Chest pain [None]
  - Supraventricular tachycardia [None]
  - Hypotension [None]
  - Middle insomnia [None]

NARRATIVE: CASE EVENT DATE: 20120701
